FAERS Safety Report 6298096-8 (Version None)
Quarter: 2009Q3

REPORT INFORMATION
  Report Type: 
  Country: None (occurrence: None)
  Receive Date: 20090805
  Receipt Date: 20090727
  Transmission Date: 20100115
  Serious: Yes (Life-Threatening, Hospitalization, Other)
  Sender: FDA-Public Use
  Company Number: FR-CELGENEUS-056-21880-09072032

PATIENT
  Sex: Male
  Weight: 60 kg

DRUGS (10)
  1. REVLIMID [Suspect]
     Route: 048
     Dates: start: 20090709
  2. CERUBIDINE [Suspect]
     Route: 051
     Dates: start: 20090709, end: 20090711
  3. CYTARABINE [Suspect]
     Route: 051
     Dates: start: 20090709, end: 20090715
  4. METFORMIN HCL [Concomitant]
     Route: 048
  5. JANUVIA [Concomitant]
     Route: 048
  6. KENZEN [Concomitant]
     Indication: HYPERTENSION
     Route: 048
  7. EXJADE [Concomitant]
     Indication: DRUG USE FOR UNKNOWN INDICATION
     Route: 048
  8. STILNOX [Concomitant]
     Indication: INSOMNIA
     Route: 048
  9. LANTUS [Concomitant]
     Route: 058
  10. NOVORAPID [Concomitant]
     Route: 058

REACTIONS (5)
  - CANDIDA SEPSIS [None]
  - CATHETER RELATED INFECTION [None]
  - HALLUCINATION [None]
  - RENAL FAILURE [None]
  - SEPTIC SHOCK [None]
